FAERS Safety Report 4433632-5 (Version None)
Quarter: 2004Q3

REPORT INFORMATION
  Report Type: 
  Country: None (occurrence: None)
  Receive Date: 20040825
  Receipt Date: 20040825
  Transmission Date: 20050211
  Serious: Yes (Death)
  Sender: FDA-Public Use
  Company Number: None

PATIENT
  Age: 64 Year
  Sex: Male
  Weight: 89.8122 kg

DRUGS (17)
  1. AVASTIN [Suspect]
     Indication: COLON CANCER METASTATIC
     Dosage: 450 MG IV Q 2 WEEKS
     Route: 042
     Dates: start: 20040726, end: 20040809
  2. INFED [Concomitant]
  3. PROCHLORPERAZINE [Concomitant]
  4. LOPERAMIDE HCL [Concomitant]
  5. DOCUSATE SODIUM [Concomitant]
  6. HYDROCODONE/ACETAMINOPHEN [Concomitant]
  7. ATENOLOL [Concomitant]
  8. NIFEDIPINE [Concomitant]
  9. GLYBURIDE [Concomitant]
  10. LOVASTATIN [Concomitant]
  11. COZAAR [Concomitant]
  12. METFORMIN HCL [Concomitant]
  13. VIAGRA [Concomitant]
  14. ONE TOUCH **ULTRA** TEST ST [Concomitant]
  15. IRINOTECAN [Concomitant]
  16. LEUCOVORIN [Concomitant]
  17. FLUOROURACIL [Concomitant]

REACTIONS (2)
  - CARDIAC DISORDER [None]
  - CIRCULATORY COLLAPSE [None]
